FAERS Safety Report 8494238-4 (Version None)
Quarter: 2012Q3

REPORT INFORMATION
  Report Type: 
  Country: None (occurrence: None)
  Receive Date: 20120709
  Receipt Date: 20120703
  Transmission Date: 20120928
  Serious: Yes (Hospitalization)
  Sender: FDA-Public Use
  Company Number: PHHY2012TR057014

PATIENT
  Age: 2 Year
  Sex: Male

DRUGS (1)
  1. CARBAMAZEPINE [Suspect]
     Indication: GRAND MAL CONVULSION
     Dosage: 10 MG/KG, DAILY

REACTIONS (2)
  - ANAEMIA [None]
  - APLASIA PURE RED CELL [None]
